FAERS Safety Report 4819417-6 (Version None)
Quarter: 2005Q4

REPORT INFORMATION
  Report Type: 
  Country: None (occurrence: None)
  Receive Date: 20051012
  Receipt Date: 20050707
  Transmission Date: 20060501
  Serious: Yes (Other)
  Sender: FDA-Public Use
  Company Number: A03200502172

PATIENT
  Age: 72 Year
  Sex: Male
  Weight: 99.7913 kg

DRUGS (7)
  1. UROXATRAL [Suspect]
     Indication: PROSTATE EXAMINATION ABNORMAL
     Dosage: 10 MG OD - ORAL
     Route: 048
     Dates: start: 20050701
  2. CLONIDINE [Suspect]
     Dosage: 2 MG BID - ORAL
     Route: 048
  3. CLONIDINE [Suspect]
     Dosage: 1 MG QD - ORAL
     Route: 048
  4. METOPROLOL SUCCINATE [Concomitant]
  5. BETA BLOCKERS [Concomitant]
  6. ANGIOTENSIN RECEPTOR BLOCKER [Concomitant]
  7. FUROSEMIDE [Concomitant]

REACTIONS (12)
  - BLOOD GLUCOSE INCREASED [None]
  - CONSTIPATION [None]
  - DIZZINESS [None]
  - DRUG INEFFECTIVE [None]
  - DRUG INTERACTION [None]
  - HEART RATE INCREASED [None]
  - HERNIA [None]
  - HYPERTENSION [None]
  - HYPOTENSION [None]
  - NOCTURIA [None]
  - OLIGURIA [None]
  - VISION BLURRED [None]
